FAERS Safety Report 5542681-5 (Version None)
Quarter: 2007Q4

REPORT INFORMATION
  Report Type: 
  Country: None (occurrence: None)
  Receive Date: 20071123
  Receipt Date: 20070628
  Transmission Date: 20080405
  Serious: Yes (Death, Hospitalization)
  Sender: FDA-Public Use
  Company Number: US-JNJFOC-20070700204

PATIENT
  Age: 61 Year
  Sex: Male
  Weight: 81.8 kg

DRUGS (7)
  1. LEVAQUIN [Suspect]
     Indication: DIVERTICULITIS
     Dosage: 500 MG, IN  1 DAY
     Dates: start: 20070501, end: 20070524
  2. LISINOPRIL [Concomitant]
  3. ALDACTONE (SPIRONOLACTONE) UNSPECIFIED [Concomitant]
  4. PLAVIX [Concomitant]
  5. ASA (ACETYLSALICYLIC ACID) UNSPECIFIED [Concomitant]
  6. PROTONIX (PANTOPRAZOLE) UNSPECIFIED [Concomitant]
  7. COREG (CARVEDILOL) UNSPECIFIED [Concomitant]

REACTIONS (2)
  - HEPATIC FAILURE [None]
  - RENAL FAILURE ACUTE [None]
